FAERS Safety Report 7135104-6 (Version None)
Quarter: 2010Q4

REPORT INFORMATION
  Report Type: 
  Country: None (occurrence: None)
  Receive Date: 20101203
  Receipt Date: 20101118
  Transmission Date: 20110411
  Serious: Yes (Hospitalization)
  Sender: FDA-Public Use
  Company Number: DE-ELI_LILLY_AND_COMPANY-DE201011005072

PATIENT
  Age: 41 Year
  Sex: Female

DRUGS (4)
  1. CYMBALTA [Suspect]
     Indication: DEPRESSION
     Dosage: 30 MG, DAILY (1/D)
     Route: 048
     Dates: start: 20100511, end: 20100514
  2. CYMBALTA [Suspect]
     Dosage: 60 MG, DAILY (1/D)
     Route: 048
     Dates: start: 20100515
  3. STANGYL [Concomitant]
     Indication: DEPRESSION
     Dosage: 12.5 MG, DAILY (1/D)
     Route: 048
     Dates: start: 20100422, end: 20100614
  4. PANTOZOL [Concomitant]
     Dosage: 20 MG, DAILY (1/D)
     Route: 048
     Dates: start: 20100515

REACTIONS (2)
  - PHOTOSENSITIVITY ALLERGIC REACTION [None]
  - PHOTOSENSITIVITY REACTION [None]
